FAERS Safety Report 12878275 (Version 1)
Quarter: 2016Q4

REPORT INFORMATION
  Report Type: Spontaneous
  Country: CN (occurrence: CN)
  Receive Date: 20161024
  Receipt Date: 20161024
  Transmission Date: 20170207
  Serious: Yes (Hospitalization)
  Sender: FDA-Public Use
  Company Number: PHHY2016CN144401

PATIENT
  Age: 27 Year
  Sex: Male

DRUGS (2)
  1. HEPSERA [Suspect]
     Active Substance: ADEFOVIR DIPIVOXIL
     Indication: HEPATITIS VIRAL
     Dosage: UNK
     Route: 048
     Dates: start: 20160427, end: 20160430
  2. SEBIVO [Suspect]
     Active Substance: TELBIVUDINE
     Indication: HEPATITIS VIRAL
     Dosage: 1 DF, QD
     Route: 048
     Dates: start: 20150701, end: 20160509

REACTIONS (3)
  - Pain [Recovering/Resolving]
  - Muscular weakness [Recovering/Resolving]
  - Hypoaesthesia [Recovering/Resolving]

NARRATIVE: CASE EVENT DATE: 20160430
